FAERS Safety Report 5023725-6 (Version None)
Quarter: 2006Q2

REPORT INFORMATION
  Report Type: 
  Country: None (occurrence: None)
  Receive Date: 20060606
  Receipt Date: 20060519
  Transmission Date: 20061013
  Serious: Yes (Other)
  Sender: FDA-Public Use
  Company Number: 110612ISR

PATIENT
  Sex: Male

DRUGS (1)
  1. CISPLATIN [Suspect]

REACTIONS (2)
  - ARTERIAL OCCLUSIVE DISEASE [None]
  - ISCHAEMIA [None]
